FAERS Safety Report 8502622-5 (Version None)
Quarter: 2012Q3

REPORT INFORMATION
  Report Type: 
  Country: None (occurrence: None)
  Receive Date: 20120711
  Receipt Date: 20120704
  Transmission Date: 20120928
  Serious: Yes (Hospitalization)
  Sender: FDA-Public Use
  Company Number: PL-B.I. PHARMACEUTICALS,INC./RIDGEFIELD-2012-BP-14904YA

PATIENT
  Age: 64 Year
  Sex: Male

DRUGS (14)
  1. SIMVASTATIN [Concomitant]
  2. FUROSEMIDE (FUROSEMIDE) [Concomitant]
  3. CYCLOSPORINE [Concomitant]
  4. PHENAZOLINUM (ANTAZOLINE HYDROCHLORIDE) [Concomitant]
  5. TRAMADOL HCL [Concomitant]
  6. POTASSIUM CHLORIDE [Concomitant]
  7. OMEPRAZOLE [Concomitant]
  8. TAMSULOSIN HCL [Suspect]
     Route: 065
  9. CLEMASTINE FUMARATE [Concomitant]
  10. CETIRIZINE (CETIRIZINE) [Concomitant]
  11. BISOPROLOL FUMARATE [Concomitant]
  12. FINASTERIDE [Concomitant]
  13. VANCOMYCIN [Concomitant]
  14. ACYCLOVIR [Concomitant]

REACTIONS (1)
  - DERMATITIS EXFOLIATIVE [None]
